FAERS Safety Report 19280789 (Version 2)
Quarter: 2021Q3

REPORT INFORMATION
  Report Type: Report from Study
  Country: US (occurrence: US)
  Receive Date: 20210521
  Receipt Date: 20210716
  Transmission Date: 20211014
  Serious: No
  Sender: FDA-Public Use
  Company Number: US-ACADIA PHARMACEUTICALS INC.-ACA-2021-PIM-001620

PATIENT
  Age: 77 Year
  Sex: Male

DRUGS (21)
  1. CARBIDOPA/LEVODOPA [Concomitant]
     Active Substance: CARBIDOPA\LEVODOPA
     Dosage: 25?100 MG, QID?2 TABS, 2.5 TABS NOON, 2 TABS AT 4 PM, 2.5 TABS QTS
  2. LACTULOSE. [Concomitant]
     Active Substance: LACTULOSE
     Dosage: 30 MILLILITER, BID
  3. LISINOPRIL. [Concomitant]
     Active Substance: LISINOPRIL
     Dosage: 5 MILLIGRAM, QD
  4. NAMENDA [Concomitant]
     Active Substance: MEMANTINE HYDROCHLORIDE
     Dosage: 10 MILLIGRAM, QD
  5. AMMONIUM LACTATE. [Concomitant]
     Active Substance: AMMONIUM LACTATE
     Dosage: 12% CREAM QITS
  6. ASPIRIN [ACETYLSALICYLIC ACID] [Concomitant]
     Active Substance: ASPIRIN
     Dosage: 81 MILLIGRAM, QD
  7. NITROGLYCERIN. [Concomitant]
     Active Substance: NITROGLYCERIN
     Dosage: 0.4 MG PRN
  8. SENNA [SENNA ALEXANDRINA] [Concomitant]
     Active Substance: SENNA LEAF
     Dosage: 8.6 MG 2 TABS DAILY
  9. VENLAFAXINE [Concomitant]
     Active Substance: VENLAFAXINE HYDROCHLORIDE
     Dosage: 150 MILLIGRAM 2 CAPSULES DAILY
  10. TRAMADOL. [Concomitant]
     Active Substance: TRAMADOL
     Dosage: 50 MILLIGRAM, 2 TABS QID
  11. DICLOFENAC [Concomitant]
     Active Substance: DICLOFENAC
     Dosage: QID
     Route: 061
  12. BACLOFEN. [Concomitant]
     Active Substance: BACLOFEN
     Dosage: 10 MILLIGRAM, TID
  13. NUPLAZID [Suspect]
     Active Substance: PIMAVANSERIN TARTRATE
     Indication: PARKINSON^S DISEASE PSYCHOSIS
     Dosage: 34 MILLIGRAM, QD
     Route: 048
     Dates: start: 20210401, end: 20210401
  14. VITAMINS NOS [Concomitant]
     Active Substance: VITAMINS
     Dosage: DAILY
  15. ROPINIROLE. [Concomitant]
     Active Substance: ROPINIROLE
     Dosage: 2 MILLIGRAM, QD
  16. TAMSULOSIN [Concomitant]
     Active Substance: TAMSULOSIN
     Dosage: 0.4 MG DAILY
  17. PROCARDIA [Concomitant]
     Active Substance: NIFEDIPINE
     Dosage: 0.3% BID
  18. ATORVASTATIN [Concomitant]
     Active Substance: ATORVASTATIN
     Dosage: 40 MILLIGRAM, QD
  19. OXYCODONE [Concomitant]
     Active Substance: OXYCODONE
     Dosage: 20 MG, 1/2 TABLET QD
  20. CHOLECALCIFEROL [Concomitant]
     Active Substance: CHOLECALCIFEROL
     Dosage: 400 UNITS, QD
  21. LORAZEPAM. [Concomitant]
     Active Substance: LORAZEPAM
     Dosage: 0.5 MILLIGRAM, 1/2 TABLET TID PEN

REACTIONS (2)
  - Dyspnoea [Recovered/Resolved]
  - Hypoaesthesia [Recovered/Resolved]

NARRATIVE: CASE EVENT DATE: 20210401
